FAERS Safety Report 6065342-5 (Version None)
Quarter: 2009Q1

REPORT INFORMATION
  Report Type: 
  Country: None (occurrence: None)
  Receive Date: 20090204
  Receipt Date: 20070130
  Transmission Date: 20090719
  Serious: No
  Sender: FDA-Public Use
  Company Number: BR-PFIZER INC-2006153647

PATIENT
  Sex: Male

DRUGS (1)
  1. GEODON [Suspect]
     Indication: ANXIETY DISORDER
     Route: 048
     Dates: start: 20061101

REACTIONS (1)
  - NO ADVERSE EVENT [None]
